FAERS Safety Report 9067029 (Version 1)
Quarter: 2013Q1

REPORT INFORMATION
  Report Type: Report from Study
  Country: US (occurrence: US)
  Receive Date: 20130201
  Receipt Date: 20130201
  Transmission Date: 20140127
  Serious: Yes (Other)
  Sender: FDA-Public Use
  Company Number: US-ABBOTT-12P-163-1028825-00

PATIENT
  Age: 74 None
  Sex: Female
  Weight: 49.94 kg

DRUGS (4)
  1. HUMIRA [Suspect]
     Indication: PSORIASIS
     Dates: start: 20070724
  2. LEVOTHYROXINE [Concomitant]
     Indication: THYROID DISORDER
  3. VITAMIN D [Concomitant]
     Indication: VITAMIN D DECREASED
  4. BENADRYL [Concomitant]
     Indication: HYPERSENSITIVITY

REACTIONS (9)
  - Cerebrovascular accident [Recovered/Resolved with Sequelae]
  - Hypoaesthesia [Recovered/Resolved]
  - Transient ischaemic attack [Recovering/Resolving]
  - Injection site pain [Not Recovered/Not Resolved]
  - Injection site bruising [Not Recovered/Not Resolved]
  - Epistaxis [Recovered/Resolved]
  - Injection site haemorrhage [Not Recovered/Not Resolved]
  - Dehydration [Recovered/Resolved]
  - Memory impairment [Not Recovered/Not Resolved]
